FAERS Safety Report 22286700 (Version 1)
Quarter: 2023Q2

REPORT INFORMATION
  Report Type: Spontaneous
  Country: GB (occurrence: GB)
  Receive Date: 20230505
  Receipt Date: 20230505
  Transmission Date: 20230722
  Serious: Yes (Other)
  Sender: FDA-Public Use
  Company Number: GB-AUROBINDO-AUR-APL-2023-032105

PATIENT
  Sex: Female
  Weight: 57 kg

DRUGS (1)
  1. VENLAFAXINE [Suspect]
     Active Substance: VENLAFAXINE HYDROCHLORIDE
     Indication: Product used for unknown indication
     Dosage: UNK
     Route: 065

REACTIONS (6)
  - Confusional state [Not Recovered/Not Resolved]
  - Tachycardia [Unknown]
  - Insomnia [Unknown]
  - Fatigue [Unknown]
  - Nausea [Unknown]
  - Product substitution issue [Unknown]
